FAERS Safety Report 17119604 (Version 1)
Quarter: 2019Q4

REPORT INFORMATION
  Report Type: Report from Study
  Country: IT (occurrence: IT)
  Receive Date: 20191206
  Receipt Date: 20191206
  Transmission Date: 20200122
  Serious: Yes (Other)
  Sender: FDA-Public Use
  Company Number: IT-TEVA-2019-IT-1147042

PATIENT
  Age: 25 Year
  Sex: Female

DRUGS (1)
  1. NAPROXEN SODIUM. [Suspect]
     Active Substance: NAPROXEN SODIUM
     Indication: DYSMENORRHOEA
     Dosage: 1 DOSAGE FORM
     Route: 048
     Dates: start: 20191007, end: 20191007

REACTIONS (4)
  - Angioedema [Recovering/Resolving]
  - Periorbital swelling [Recovering/Resolving]
  - Drug hypersensitivity [Recovering/Resolving]
  - Dyspnoea [Recovering/Resolving]

NARRATIVE: CASE EVENT DATE: 20191007
